FAERS Safety Report 4521901-X (Version None)
Quarter: 2004Q4

REPORT INFORMATION
  Report Type: 
  Country: None (occurrence: None)
  Receive Date: 20041209
  Receipt Date: 20030924
  Transmission Date: 20050328
  Serious: Yes (Death, Hospitalization)
  Sender: FDA-Public Use
  Company Number: DE-BRISTOL-MYERS SQUIBB COMPANY-12392221

PATIENT
  Age: 71 Year
  Sex: Male

DRUGS (4)
  1. CISPLATIN [Suspect]
     Indication: NON-SMALL CELL LUNG CANCER
     Dosage: CY. 2 ON 06-JUN = 125 MG (DUE TO WT. LOSS)
     Route: 042
     Dates: start: 20030516, end: 20030516
  2. PACLITAXEL [Suspect]
     Indication: NON-SMALL CELL LUNG CANCER
     Dosage: 2ND CYCLE (06-JUN) - 275 MG (DUE TO WT. LOSS)
     Route: 042
     Dates: start: 20030516, end: 20030516
  3. CEFTAZIDIME [Concomitant]
     Route: 042
     Dates: start: 20030523, end: 20030527
  4. RANITIDINE [Concomitant]
     Route: 042
     Dates: start: 20030523, end: 20030527

REACTIONS (4)
  - ANOREXIA [None]
  - FATIGUE [None]
  - FEBRILE NEUTROPENIA [None]
  - GENERAL PHYSICAL HEALTH DETERIORATION [None]
